FAERS Safety Report 10503726 (Version 1)
Quarter: 2014Q4

REPORT INFORMATION
  Report Type: Spontaneous
  Country: FR (occurrence: FR)
  Receive Date: 20141008
  Receipt Date: 20141008
  Transmission Date: 20150528
  Serious: Yes (Hospitalization)
  Sender: FDA-Public Use
  Company Number: FR-BAYER-2014-144093

PATIENT
  Age: 84 Year
  Sex: Male

DRUGS (10)
  1. COAPROVEL [Concomitant]
     Active Substance: HYDROCHLOROTHIAZIDE\IRBESARTAN
     Dosage: 1 DF, QD
     Route: 048
  2. TAHOR [Concomitant]
     Active Substance: ATORVASTATIN CALCIUM
     Dosage: 1 DF, QD
     Route: 048
  3. PLAVIX [Concomitant]
     Active Substance: CLOPIDOGREL BISULFATE
     Dosage: 75 MG, UNK
     Route: 048
     Dates: start: 201311
  4. NOVONORM [Concomitant]
     Active Substance: REPAGLINIDE
     Dosage: 2 MG, UNK
     Route: 048
  5. LOXEN [Concomitant]
     Active Substance: NICARDIPINE HYDROCHLORIDE
     Dosage: 1 DF, BID
  6. CIFLOX [Suspect]
     Active Substance: CIPROFLOXACIN
     Indication: PROSTATITIS
     Dosage: 500 MG, BID
     Route: 048
     Dates: start: 20140707, end: 20140720
  7. SERESTA [Suspect]
     Active Substance: OXAZEPAM
     Dosage: 10 MG, UNK
     Route: 048
  8. NEBILOX [Concomitant]
     Active Substance: NEBIVOLOL HYDROCHLORIDE
     Dosage: 1 DF, QD
     Route: 048
  9. AVODART [Concomitant]
     Active Substance: DUTASTERIDE
     Dosage: 1 DF, QD
     Route: 048
  10. NOVOMIX [INSULIN ASPART,INSULIN ASPART PROTAMINE (CRYSTALLINE)] [Concomitant]
     Dosage: UNK
     Route: 058

REACTIONS (3)
  - General physical health deterioration [Unknown]
  - Confusional state [Recovered/Resolved]
  - Partial seizures [None]

NARRATIVE: CASE EVENT DATE: 20140720
